FAERS Safety Report 6986086-9 (Version None)
Quarter: 2010Q3

REPORT INFORMATION
  Report Type: 
  Country: None (occurrence: None)
  Receive Date: 20100910
  Receipt Date: 20100901
  Transmission Date: 20110219
  Serious: Yes (Other)
  Sender: FDA-Public Use
  Company Number: 2010US003535

PATIENT
  Age: 48 Year
  Sex: Male

DRUGS (4)
  1. PROGRAF [Suspect]
     Indication: RENAL TRANSPLANT
     Dates: start: 20060101
  2. THYMOGLOBULIN [Suspect]
     Indication: RENAL TRANSPLANT
     Dates: start: 20060101, end: 20060101
  3. MYCOPHENOLATE MOFETIL [Suspect]
     Indication: RENAL TRANSPLANT
     Dates: start: 20060101, end: 20090101
  4. SOLU-MEDROL [Suspect]
     Indication: RENAL TRANSPLANT
     Dosage: IV NOS
     Route: 042
     Dates: start: 20090101, end: 20090101

REACTIONS (2)
  - KIDNEY TRANSPLANT REJECTION [None]
  - MALACOPLAKIA GASTROINTESTINAL [None]
